FAERS Safety Report 14525617 (Version 1)
Quarter: 2018Q1

REPORT INFORMATION
  Report Type: Spontaneous
  Country: US (occurrence: US)
  Receive Date: 20180211
  Receipt Date: 20180211
  Transmission Date: 20180509
  Serious: Yes (Other)
  Sender: FDA-Public Use
  Company Number: None

PATIENT
  Age: 53 Year
  Sex: Female
  Weight: 56.25 kg

DRUGS (8)
  1. PROLIA [Suspect]
     Active Substance: DENOSUMAB
     Indication: OSTEOPOROSIS
     Dosage: QUANTITY:1 INJECTION(S);OTHER FREQUENCY:6 MONTHS;?
     Route: 058
     Dates: start: 20171011
  2. VITAMIN D2 (ERGOCAL) [Concomitant]
  3. SYNTHROID [Concomitant]
     Active Substance: LEVOTHYROXINE SODIUM
  4. FEXOFENADINE [Concomitant]
     Active Substance: FEXOFENADINE\FEXOFENADINE HYDROCHLORIDE
  5. LINZESS [Suspect]
     Active Substance: LINACLOTIDE
  6. ADULT PROBIOTIC [Concomitant]
  7. HYDROXYZINE HCL XL [Concomitant]
  8. VITAMIN C [Concomitant]
     Active Substance: ASCORBIC ACID

REACTIONS (7)
  - Drug ineffective [None]
  - Pruritus [None]
  - Agitation [None]
  - Urticaria [None]
  - Suicidal ideation [None]
  - Eczema [None]
  - Feeling abnormal [None]

NARRATIVE: CASE EVENT DATE: 20171018
